FAERS Safety Report 21514883 (Version 5)
Quarter: 2023Q1

REPORT INFORMATION
  Report Type: Spontaneous
  Country: US (occurrence: None)
  Receive Date: 20221027
  Receipt Date: 20230223
  Transmission Date: 20230418
  Serious: Yes (Hospitalization, Other)
  Sender: FDA-Public Use
  Company Number: US-Emmaus Medical, Inc.-EMM202209-000209

PATIENT
  Age: 45 Year
  Sex: Female
  Weight: 97.522 kg

DRUGS (2)
  1. ENDARI [Suspect]
     Active Substance: GLUTAMINE
     Indication: Sickle cell anaemia with crisis
     Dosage: 10 G (TWO PACKETS)
     Route: 048
     Dates: start: 20220902
  2. ENDARI [Suspect]
     Active Substance: GLUTAMINE
     Indication: Sickle cell disease

REACTIONS (6)
  - Bronchitis [Unknown]
  - Unresponsive to stimuli [Unknown]
  - COVID-19 [Recovered/Resolved]
  - Sickle cell anaemia with crisis [Recovered/Resolved]
  - Product use issue [Unknown]
  - Product dose omission issue [Unknown]

NARRATIVE: CASE EVENT DATE: 20220812
